FAERS Safety Report 14762568 (Version 1)
Quarter: 2018Q2

REPORT INFORMATION
  Report Type: Spontaneous
  Country: DE (occurrence: DE)
  Receive Date: 20180416
  Receipt Date: 20180416
  Transmission Date: 20180711
  Serious: Yes (Other)
  Sender: FDA-Public Use
  Company Number: DE-AMGEN-DEUNI2018048130

PATIENT
  Age: 50 Year
  Sex: Female
  Weight: 54.97 kg

DRUGS (19)
  1. PACLITAXEL. [Concomitant]
     Active Substance: PACLITAXEL
     Indication: BREAST CANCER
     Dosage: 115 MG, UNK
     Route: 042
  2. PACLITAXEL. [Concomitant]
     Active Substance: PACLITAXEL
     Dosage: 115 MG, UNK
     Route: 042
     Dates: start: 20141027
  3. CIPROFLOXACIN. [Concomitant]
     Active Substance: CIPROFLOXACIN
     Indication: CATHETER PLACEMENT
     Dosage: 1500 MG, UNK
     Route: 048
     Dates: start: 20140520
  4. UNACID (AMPICILLIN SODIUM, SULBACTAM SODIUM) [Concomitant]
     Active Substance: AMPICILLIN SODIUM\SULBACTAM SODIUM
     Indication: URINARY TRACT INFECTION
     Route: 048
     Dates: start: 20140818, end: 20140820
  5. PACLITAXEL. [Concomitant]
     Active Substance: PACLITAXEL
     Dosage: 130 MG, UNK
     Route: 042
     Dates: start: 20140520
  6. XGEVA [Suspect]
     Active Substance: DENOSUMAB
     Indication: PRODUCT USED FOR UNKNOWN INDICATION
     Route: 042
  7. AVASTIN [Suspect]
     Active Substance: BEVACIZUMAB
     Indication: BREAST CANCER
     Dosage: UNK
     Route: 065
     Dates: start: 20140512, end: 20140512
  8. UNACID (AMPICILLIN SODIUM, SULBACTAM SODIUM) [Concomitant]
     Active Substance: AMPICILLIN SODIUM\SULBACTAM SODIUM
     Route: 042
     Dates: start: 20141117, end: 20141120
  9. PACLITAXEL. [Concomitant]
     Active Substance: PACLITAXEL
     Dosage: 130 MG, UNK
     Route: 042
     Dates: start: 20140901
  10. PACLITAXEL. [Concomitant]
     Active Substance: PACLITAXEL
     Dosage: 144 MG, UNK
     Route: 042
     Dates: start: 20140602
  11. PACLITAXEL. [Concomitant]
     Active Substance: PACLITAXEL
     Dosage: 144 MG, UNK
     Route: 042
  12. CIPROFLOXACIN. [Concomitant]
     Active Substance: CIPROFLOXACIN
     Dosage: 1500 MG, UNK
     Route: 048
     Dates: start: 20140811
  13. PACLITAXEL. [Concomitant]
     Active Substance: PACLITAXEL
     Dosage: 130 MG, UNK
     Route: 042
  14. PACLITAXEL. [Concomitant]
     Active Substance: PACLITAXEL
     Dosage: 130 MG, UNK
     Route: 042
     Dates: start: 20140811
  15. PACLITAXEL. [Concomitant]
     Active Substance: PACLITAXEL
     Dosage: 144 MG, UNK
     Route: 042
     Dates: start: 20140610
  16. CIPROFLOXACIN. [Concomitant]
     Active Substance: CIPROFLOXACIN
     Indication: URINARY TRACT INFECTION
     Dosage: 1500 MG, UNK
     Route: 048
     Dates: start: 20141114, end: 20141117
  17. PACLITAXEL. [Concomitant]
     Active Substance: PACLITAXEL
     Dosage: 144 MG, UNK
     Route: 042
     Dates: start: 20140519
  18. CIPROFLOXACIN. [Concomitant]
     Active Substance: CIPROFLOXACIN
     Dosage: 1500 MG, UNK
     Route: 048
     Dates: start: 20140901
  19. AMPICILLIN SODIUM. [Concomitant]
     Active Substance: AMPICILLIN SODIUM
     Indication: URINARY TRACT INFECTION
     Dosage: 3000 MG, UNK
     Route: 048
     Dates: start: 20140821, end: 20140827

REACTIONS (1)
  - Device related infection [Recovered/Resolved]

NARRATIVE: CASE EVENT DATE: 20140520
